FAERS Safety Report 12714599 (Version 1)
Quarter: 2016Q3

REPORT INFORMATION
  Report Type: Spontaneous
  Country: CN (occurrence: CN)
  Receive Date: 20160905
  Receipt Date: 20160905
  Transmission Date: 20161109
  Serious: Yes (Other)
  Sender: FDA-Public Use
  Company Number: CN-JNJFOC-20160821572

PATIENT

DRUGS (6)
  1. PREDNISONE. [Suspect]
     Active Substance: PREDNISONE
     Indication: PLASMA CELL MYELOMA
     Dosage: D 1-7
     Route: 065
     Dates: start: 200601, end: 201002
  2. DEXAMETHASONE. [Suspect]
     Active Substance: DEXAMETHASONE
     Indication: PLASMA CELL MYELOMA
     Dosage: 20-40 MG/D, D1-4
     Route: 065
     Dates: start: 200601, end: 201002
  3. DOXORUBICIN [Suspect]
     Active Substance: DOXORUBICIN
     Indication: PLASMA CELL MYELOMA
     Dosage: D1-4
     Route: 042
     Dates: start: 200601, end: 201002
  4. BORTEZOMIB [Suspect]
     Active Substance: BORTEZOMIB
     Indication: PLASMA CELL MYELOMA
     Dosage: 1.0-1.3 MG/M2 D1, D4, D8, D11
     Route: 065
     Dates: start: 200601, end: 201002
  5. THALIDOMIDE [Suspect]
     Active Substance: THALIDOMIDE
     Indication: PLASMA CELL MYELOMA
     Dosage: EVERY NIGHT AT BEDTIME
     Route: 065
     Dates: start: 200601, end: 201002
  6. MELPHALAN [Suspect]
     Active Substance: MELPHALAN
     Indication: PLASMA CELL MYELOMA
     Dosage: D 1-7
     Route: 065
     Dates: start: 200601, end: 201002

REACTIONS (9)
  - Neuropathy peripheral [Unknown]
  - Thrombosis [Unknown]
  - Herpes zoster [Unknown]
  - Platelet count decreased [Unknown]
  - Gastrointestinal disorder [Unknown]
  - Fatigue [Unknown]
  - Anaemia [Unknown]
  - Rash [Unknown]
  - Agranulocytosis [Unknown]
